FAERS Safety Report 9165603 (Version 1)
Quarter: 2013Q1

REPORT INFORMATION
  Report Type: Spontaneous
  Country: DE (occurrence: DE)
  Receive Date: 20130315
  Receipt Date: 20130315
  Transmission Date: 20140127
  Serious: Yes (Other)
  Sender: FDA-Public Use
  Company Number: DE-ROCHE-1200945

PATIENT
  Age: 61 Year
  Sex: Female

DRUGS (2)
  1. BONVIVA [Suspect]
     Indication: PRODUCT USED FOR UNKNOWN INDICATION
     Route: 042
     Dates: start: 2008, end: 20121220
  2. BONVIVA [Suspect]
     Route: 042
     Dates: start: 20121220

REACTIONS (1)
  - Bone density decreased [Not Recovered/Not Resolved]
